FAERS Safety Report 21286941 (Version 1)
Quarter: 2022Q3

REPORT INFORMATION
  Report Type: Spontaneous
  Country: US (occurrence: US)
  Receive Date: 20220902
  Receipt Date: 20220902
  Transmission Date: 20221027
  Serious: Yes (Other)
  Sender: FDA-Public Use
  Company Number: US-PFIZER INC-PV202200054785

PATIENT
  Age: 83 Year
  Sex: Female

DRUGS (2)
  1. XANAX [Suspect]
     Active Substance: ALPRAZOLAM
     Dosage: UNK
  2. OXYCONTIN [Suspect]
     Active Substance: OXYCODONE HYDROCHLORIDE
     Dosage: UNK

REACTIONS (19)
  - Dementia [Unknown]
  - Mental impairment [Unknown]
  - Fall [Unknown]
  - Withdrawal syndrome [Unknown]
  - Gait inability [Unknown]
  - Proctalgia [Unknown]
  - Injury [Unknown]
  - Weight decreased [Unknown]
  - Decreased appetite [Unknown]
  - Feeding disorder [Unknown]
  - Illness [Unknown]
  - Confusional state [Unknown]
  - Abdominal discomfort [Unknown]
  - Diarrhoea [Unknown]
  - Dry mouth [Unknown]
  - Feeling abnormal [Unknown]
  - Cerebral disorder [Unknown]
  - Dizziness [Unknown]
  - Visual impairment [Unknown]
